FAERS Safety Report 5786869-7 (Version None)
Quarter: 2008Q2

REPORT INFORMATION
  Report Type: 
  Country: None (occurrence: None)
  Receive Date: 20080625
  Receipt Date: 20080619
  Transmission Date: 20081010
  Serious: Yes (Hospitalization)
  Sender: FDA-Public Use
  Company Number: US-BAYER-200816466NA

PATIENT
  Age: 35 Year
  Sex: Female
  Weight: 109 kg

DRUGS (4)
  1. YAZ [Suspect]
     Indication: MENSTRUATION IRREGULAR
     Dosage: TOTAL DAILY DOSE: 2 DF
     Route: 048
     Dates: start: 20071101
  2. YAZ [Suspect]
     Dosage: TOTAL DAILY DOSE: 1 DF
     Route: 048
     Dates: start: 20071101, end: 20071201
  3. ORTHO TRI-CYCLEN [Concomitant]
  4. LO/OVRAL-28 [Concomitant]

REACTIONS (6)
  - DYSPNOEA [None]
  - HYPOTHYROIDISM [None]
  - MUSCULOSKELETAL CHEST PAIN [None]
  - PAIN IN EXTREMITY [None]
  - PHLEBITIS SUPERFICIAL [None]
  - PULMONARY EMBOLISM [None]
